FAERS Safety Report 5225023-4 (Version None)
Quarter: 2007Q1

REPORT INFORMATION
  Report Type: 
  Country: None (occurrence: None)
  Receive Date: 20070131
  Receipt Date: 20070129
  Transmission Date: 20070707
  Serious: Yes (Hospitalization)
  Sender: FDA-Public Use
  Company Number: US-GLAXOSMITHKLINE-A0578040A

PATIENT
  Age: 42 Year
  Sex: Male

DRUGS (5)
  1. LAMICTAL [Suspect]
     Indication: BIPOLAR DISORDER
     Dosage: 200MG PER DAY
     Route: 048
     Dates: start: 20040101
  2. ABILIFY [Concomitant]
  3. PROZAC [Concomitant]
  4. SEROQUEL [Concomitant]
  5. EFFEXOR [Concomitant]

REACTIONS (5)
  - ASTHENIA [None]
  - GASTROINTESTINAL DISORDER [None]
  - HYPOTHYROIDISM [None]
  - MEDICATION RESIDUE [None]
  - SEXUAL DYSFUNCTION [None]
